FAERS Safety Report 6709989-9 (Version None)
Quarter: 2010Q2

REPORT INFORMATION
  Report Type: 
  Country: None (occurrence: None)
  Receive Date: 20100503
  Receipt Date: 20100503
  Transmission Date: 20101027
  Serious: Yes (Hospitalization)
  Sender: FDA-Public Use
  Company Number: None

PATIENT
  Sex: Male
  Weight: 95.9 kg

DRUGS (2)
  1. CISPLATIN [Suspect]
     Dates: end: 20100317
  2. TAXOL [Suspect]
     Dates: end: 20100317

REACTIONS (5)
  - DEHYDRATION [None]
  - EPIGASTRIC DISCOMFORT [None]
  - NAUSEA [None]
  - SUPRAVENTRICULAR TACHYCARDIA [None]
  - VOMITING [None]
